FAERS Safety Report 4368040-9 (Version None)
Quarter: 2004Q2

REPORT INFORMATION
  Report Type: 
  Country: None (occurrence: None)
  Receive Date: 20040602
  Receipt Date: 20040116
  Transmission Date: 20050107
  Serious: Yes (Hospitalization)
  Sender: FDA-Public Use
  Company Number: FR-BRISTOL-MYERS SQUIBB COMPANY-12481651

PATIENT
  Age: 37 Year
  Sex: Female
  Weight: 80 kg

DRUGS (4)
  1. COUMADIN [Suspect]
     Indication: PULMONARY EMBOLISM
     Dosage: PREVIOUS DOSE 5MG/DAY.
     Route: 048
     Dates: start: 20040109
  2. DOLIPRANE [Suspect]
     Indication: PAIN
     Dates: start: 20040109, end: 20040116
  3. INNOHEP [Concomitant]
  4. ATARAX [Concomitant]
     Dates: start: 20040112, end: 20040117

REACTIONS (1)
  - NEUTROPENIA [None]
